FAERS Safety Report 23248233 (Version 4)
Quarter: 2024Q2

REPORT INFORMATION
  Report Type: Spontaneous
  Country: US (occurrence: US)
  Receive Date: 20231130
  Receipt Date: 20240625
  Transmission Date: 20240716
  Serious: Yes (Other)
  Sender: FDA-Public Use
  Company Number: US-SA-SAC20231127000313

PATIENT
  Age: 82 Year
  Sex: Female

DRUGS (5)
  1. DUPIXENT [Suspect]
     Active Substance: DUPILUMAB
     Indication: Asthma
     Dosage: 300 MG, QOW
     Route: 058
     Dates: start: 20230513
  2. DONEPEZIL [Concomitant]
     Active Substance: DONEPEZIL\DONEPEZIL HYDROCHLORIDE
     Dosage: UNK
  3. MEMANTINE [Concomitant]
     Active Substance: MEMANTINE
     Dosage: UNK
  4. MONTELUKAST [Concomitant]
     Active Substance: MONTELUKAST SODIUM
     Dosage: UNK
  5. TRELEGY ELLIPTA [Concomitant]
     Active Substance: FLUTICASONE FUROATE\UMECLIDINIUM BROMIDE\VILANTEROL TRIFENATATE
     Dosage: UNK

REACTIONS (6)
  - Dementia Alzheimer^s type [Not Recovered/Not Resolved]
  - Urinary tract infection [Unknown]
  - Nasopharyngitis [Unknown]
  - Asthma [Unknown]
  - Impaired quality of life [Unknown]
  - Drug ineffective [Unknown]

NARRATIVE: CASE EVENT DATE: 20230101
